FAERS Safety Report 6386871-0 (Version None)
Quarter: 2009Q4

REPORT INFORMATION
  Report Type: 
  Country: None (occurrence: None)
  Receive Date: 20091002
  Receipt Date: 20091001
  Transmission Date: 20100525
  Serious: Yes (Hospitalization, Other)
  Sender: FDA-Public Use
  Company Number: TW-ROXANE LABORATORIES, INC.-2009-RO-01023RO

PATIENT
  Age: 29 Year
  Sex: Male

DRUGS (18)
  1. LITHIUM CARBONATE [Suspect]
     Indication: SCHIZOAFFECTIVE DISORDER
     Dosage: 1200 MG
  2. LITHIUM CARBONATE [Suspect]
     Dosage: 600 MG
  3. LITHIUM CARBONATE [Suspect]
     Dosage: 900 MG
  4. RISPERIDONE [Suspect]
     Indication: BIPOLAR DISORDER
  5. CARBAMAZEPINE [Suspect]
     Indication: BIPOLAR DISORDER
  6. HALOPERIDOL [Suspect]
     Indication: BIPOLAR DISORDER
  7. OLANZAPINE [Suspect]
     Indication: BIPOLAR DISORDER
  8. OLANZAPINE [Suspect]
     Indication: SCHIZOPHRENIA
  9. ZIPRASIDONE HCL [Suspect]
     Indication: SCHIZOPHRENIA
  10. AMISULPRIDE [Suspect]
     Indication: SCHIZOPHRENIA
  11. CLOZAPINE [Suspect]
     Indication: SCHIZOPHRENIA
  12. CLOZAPINE [Suspect]
     Dosage: 450 MG
  13. CLOZAPINE [Suspect]
     Dosage: 500 MG
  14. CLOZAPINE [Suspect]
     Dosage: 400 MG
  15. CLOZAPINE [Suspect]
     Dosage: 300 MG
  16. CLOZAPINE [Suspect]
     Dosage: 350 MG
  17. VALPROIC ACID [Suspect]
     Indication: SCHIZOAFFECTIVE DISORDER
     Dosage: 2000 MG
  18. VALPROIC ACID [Suspect]
     Dosage: 1500 MG

REACTIONS (4)
  - DRUG INEFFECTIVE [None]
  - DRUG INTERACTION [None]
  - RHABDOMYOLYSIS [None]
  - SCHIZOAFFECTIVE DISORDER [None]
